FAERS Safety Report 4383500-2 (Version None)
Quarter: 2004Q2

REPORT INFORMATION
  Report Type: 
  Country: None (occurrence: None)
  Receive Date: 20040623
  Receipt Date: 20030328
  Transmission Date: 20050107
  Serious: Yes (Hospitalization)
  Sender: FDA-Public Use
  Company Number: PHHO2003DE04117

PATIENT
  Age: 9 Month
  Sex: Female

DRUGS (3)
  1. SIMULECT [Suspect]
     Indication: LIVER TRANSPLANT
     Dosage: 10 MG, ONCE/SINGLE
     Route: 042
     Dates: start: 20020702, end: 20020702
  2. SIMULECT [Suspect]
     Dosage: 10 MG, ONCE/SINGLE
     Route: 042
     Dates: start: 20020706, end: 20020706
  3. NEORAL [Suspect]
     Indication: LIVER TRANSPLANT
     Dosage: 40 MG, BID
     Route: 048
     Dates: start: 20020702

REACTIONS (10)
  - BIOPSY SITE UNSPECIFIED ABNORMAL [None]
  - CHOLANGITIS [None]
  - CHOLESTASIS [None]
  - DISEASE RECURRENCE [None]
  - EPSTEIN-BARR VIRUS INFECTION [None]
  - HEPATIC ENZYME INCREASED [None]
  - HEPATITIS [None]
  - HEPATOCELLULAR DAMAGE [None]
  - LYMPHOCYTIC INFILTRATION [None]
  - VIRAL LOAD INCREASED [None]
